FAERS Safety Report 7441599-0 (Version None)
Quarter: 2011Q2

REPORT INFORMATION
  Report Type: 
  Country: None (occurrence: None)
  Receive Date: 20110428
  Receipt Date: 20110427
  Transmission Date: 20111010
  Serious: No
  Sender: FDA-Public Use
  Company Number: US-PFIZER INC-2011091102

PATIENT
  Sex: Female
  Weight: 68 kg

DRUGS (1)
  1. PRISTIQ [Suspect]
     Indication: ANXIETY
     Dosage: 50MG DAILY
     Route: 048
     Dates: start: 20110401, end: 20110426

REACTIONS (6)
  - INSOMNIA [None]
  - CONSTIPATION [None]
  - FATIGUE [None]
  - DRY EYE [None]
  - DIZZINESS [None]
  - DRY MOUTH [None]
